FAERS Safety Report 19985752 (Version 1)
Quarter: 2021Q4

REPORT INFORMATION
  Report Type: Spontaneous
  Country: CA (occurrence: CA)
  Receive Date: 20211022
  Receipt Date: 20211022
  Transmission Date: 20220303
  Serious: Yes (Other)
  Sender: FDA-Public Use
  Company Number: CA-BAYER-2021A233503

PATIENT
  Age: 56 Year
  Sex: Female
  Weight: 126.98 kg

DRUGS (4)
  1. CLARITIN [Suspect]
     Active Substance: LORATADINE
     Indication: Pruritus
     Dosage: 1 DF, QD
     Route: 048
  2. CLARITIN [Suspect]
     Active Substance: LORATADINE
     Indication: Nasal congestion
  3. CLARITIN [Suspect]
     Active Substance: LORATADINE
     Indication: Hypersensitivity
  4. PFIZER-BIONTECH COVID-19 VACCINE [Concomitant]
     Active Substance: TOZINAMERAN

REACTIONS (7)
  - Product quality issue [Not Recovered/Not Resolved]
  - Drug ineffective [None]
  - Urticaria [None]
  - Rash [None]
  - Pruritus [None]
  - Hypersensitivity [None]
  - Sneezing [None]
